FAERS Safety Report 6788725-4 (Version None)
Quarter: 2010Q2

REPORT INFORMATION
  Report Type: 
  Country: None (occurrence: None)
  Receive Date: 20100623
  Receipt Date: 20080429
  Transmission Date: 20101027
  Serious: Yes (Life-Threatening)
  Sender: FDA-Public Use
  Company Number: US-PFIZER INC-2008037160

PATIENT
  Age: 65 Year
  Sex: Male
  Weight: 80 kg

DRUGS (12)
  1. SUTENT [Suspect]
     Indication: METASTATIC RENAL CELL CARCINOMA
     Dosage: FREQUENCY: DAILY
     Route: 048
     Dates: start: 20071201, end: 20080128
  2. WARFARIN [Concomitant]
     Route: 048
  3. AMBIEN [Concomitant]
     Dosage: QHS PRN
     Route: 048
  4. EPOGEN [Concomitant]
  5. VICODIN [Concomitant]
     Dosage: 5/500MG 1 TABLET
     Route: 048
  6. BENZONATATE [Concomitant]
     Route: 048
  7. POTASSIUM CHLORIDE [Concomitant]
  8. OMEPRAZOLE [Concomitant]
     Route: 048
  9. ALLOPURINOL [Concomitant]
  10. MULTI-VITAMINS [Concomitant]
  11. FERROUS SULFATE TAB [Concomitant]
     Route: 048
  12. DIOVAN HCT [Concomitant]
     Dosage: 12.5/80MG
     Route: 048

REACTIONS (1)
  - HYPERTENSIVE CRISIS [None]
